FAERS Safety Report 10742130 (Version 2)
Quarter: 2015Q2

REPORT INFORMATION
  Report Type: Spontaneous
  Country: IT (occurrence: IT)
  Receive Date: 20150127
  Receipt Date: 20150424
  Transmission Date: 20150821
  Serious: Yes (Hospitalization)
  Sender: FDA-Public Use
  Company Number: IT-RECKITT BENCKISER PHARMACEUTICAL, INC-RB-075054-2015

PATIENT
  Age: 47 Year
  Sex: Male

DRUGS (2)
  1. METHADONE CHLORHYDRATE [Suspect]
     Active Substance: METHADONE HYDROCHLORIDE
     Indication: DRUG DEPENDENCE
     Dosage: 1 DOSAGE UNIT
     Route: 048
     Dates: start: 20140101, end: 20140721
  2. BUPRENORPHINE [Suspect]
     Active Substance: BUPRENORPHINE
     Indication: PRODUCT USED FOR UNKNOWN INDICATION
     Dosage: 1 DOSAGE UNIT
     Route: 048
     Dates: start: 20140721, end: 20140721

REACTIONS (3)
  - Delusion [Recovered/Resolved]
  - Drug interaction [Unknown]
  - Agitation [Recovered/Resolved]

NARRATIVE: CASE EVENT DATE: 20140721
